FAERS Safety Report 23245833 (Version 1)
Quarter: 2023Q4

REPORT INFORMATION
  Report Type: Spontaneous
  Country: US (occurrence: US)
  Receive Date: 20231130
  Receipt Date: 20231130
  Transmission Date: 20240110
  Serious: No
  Sender: FDA-Public Use
  Company Number: US-PFIZER INC-202300397035

PATIENT
  Age: 79 Year
  Sex: Female
  Weight: 69.85 kg

DRUGS (4)
  1. IBRANCE [Suspect]
     Active Substance: PALBOCICLIB
     Indication: Breast cancer metastatic
     Dosage: 75 MG, CYCLIC (3 WEEKS OF MEDICINE AND 1 WEEK OFF)
  2. EXEMESTANE [Suspect]
     Active Substance: EXEMESTANE
     Dosage: UNK
  3. LISINOPRIL [Concomitant]
     Active Substance: LISINOPRIL
     Indication: Hypertension
     Dosage: 20 MG, 2X/DAY
  4. HYDROCHLOROTHIAZIDE [Concomitant]
     Active Substance: HYDROCHLOROTHIAZIDE
     Indication: Hypertension
     Dosage: 25 MG, 1X/DAY

REACTIONS (4)
  - Fatigue [Unknown]
  - Alopecia [Not Recovered/Not Resolved]
  - Mutism [Unknown]
  - Intentional product misuse [Unknown]
